FAERS Safety Report 21580182 (Version 2)
Quarter: 2022Q4

REPORT INFORMATION
  Report Type: Spontaneous
  Country: US (occurrence: US)
  Receive Date: 20221110
  Receipt Date: 20221116
  Transmission Date: 20230112
  Serious: Yes (Other)
  Sender: FDA-Public Use
  Company Number: US-TEVA-2022-US-2825457

PATIENT
  Age: 41 Year
  Sex: Male
  Weight: 109 kg

DRUGS (10)
  1. HYDROCHLOROTHIAZIDE\VALSARTAN [Suspect]
     Active Substance: HYDROCHLOROTHIAZIDE\VALSARTAN
     Indication: Hypertension
     Dosage: 320MG/25MG
     Route: 065
     Dates: start: 20170525, end: 20170823
  2. HYDROCHLOROTHIAZIDE\VALSARTAN [Suspect]
     Active Substance: HYDROCHLOROTHIAZIDE\VALSARTAN
     Indication: Hypertension
     Dosage: 320MG/25MG
     Route: 065
     Dates: start: 20170807, end: 20180927
  3. EXCEDRIN MIGRAINE [Concomitant]
     Active Substance: ACETAMINOPHEN\ASPIRIN\CAFFEINE
     Indication: Headache
     Dosage: TO PRESENT AS STANDARD PILL AS NEEDED, FREQUENCY TIME : AS REQUIRED
     Route: 065
     Dates: start: 2015
  4. METFORMIN [Concomitant]
     Active Substance: METFORMIN HYDROCHLORIDE
     Indication: Glucose tolerance impaired
     Dosage: 500 MILLIGRAM DAILY; UNTIL PRESENT
     Route: 065
     Dates: start: 2016
  5. HYDROCHLOROTHIAZIDE\TELMISARTAN [Concomitant]
     Active Substance: HYDROCHLOROTHIAZIDE\TELMISARTAN
     Indication: Hypertension
     Dosage: 80MG/12.5 MG
     Route: 065
     Dates: start: 201807, end: 201812
  6. CARVEDILOL [Concomitant]
     Active Substance: CARVEDILOL
     Indication: Hypertension
     Dosage: 25 MILLIGRAM DAILY; TO PRESENT
     Route: 065
     Dates: start: 2014
  7. HYDROCHLOROTHIAZIDE\LISINOPRIL [Concomitant]
     Active Substance: HYDROCHLOROTHIAZIDE\LISINOPRIL
     Indication: Hypertension
     Dosage: 20MG/12.5MG
     Route: 065
     Dates: start: 2014, end: 2018
  8. LABETALOL HYDROCHLORIDE [Concomitant]
     Active Substance: LABETALOL HYDROCHLORIDE
     Indication: Hypertension
     Dosage: 200 MILLIGRAM DAILY;
     Route: 065
     Dates: start: 2016, end: 2016
  9. BUPROPION [Concomitant]
     Active Substance: BUPROPION
     Indication: Anxiety
     Dosage: 150 MILLIGRAM DAILY;
     Route: 065
     Dates: start: 2019, end: 2020
  10. AMLODIPINE [Concomitant]
     Active Substance: AMLODIPINE BESYLATE
     Indication: Hypertension
     Dosage: 5 MILLIGRAM DAILY; TO PRESENT
     Route: 065
     Dates: start: 2019

REACTIONS (8)
  - Rectal cancer [Unknown]
  - Rectal haemorrhage [Not Recovered/Not Resolved]
  - Urethral haemorrhage [Not Recovered/Not Resolved]
  - Urethral stenosis [Not Recovered/Not Resolved]
  - Pain [Not Recovered/Not Resolved]
  - Incontinence [Not Recovered/Not Resolved]
  - Radiation proctitis [Not Recovered/Not Resolved]
  - Sexual dysfunction [Not Recovered/Not Resolved]
